FAERS Safety Report 5123999-7 (Version None)
Quarter: 2006Q3

REPORT INFORMATION
  Report Type: 
  Country: None (occurrence: None)
  Receive Date: 20060808
  Receipt Date: 20050921
  Transmission Date: 20061208
  Serious: Yes (Hospitalization)
  Sender: FDA-Public Use
  Company Number: 2005131924

PATIENT
  Sex: Male

DRUGS (1)
  1. FLAGYL [Suspect]
     Indication: ILL-DEFINED DISORDER

REACTIONS (1)
  - DIARRHOEA [None]
